FAERS Safety Report 21929498 (Version 2)
Quarter: 2025Q1

REPORT INFORMATION
  Report Type: Spontaneous
  Country: US (occurrence: US)
  Receive Date: 20230131
  Receipt Date: 20250227
  Transmission Date: 20250409
  Serious: No
  Sender: UCB
  Company Number: US-UCBSA-2022046589

PATIENT
  Age: 71 Year
  Sex: Male

DRUGS (11)
  1. LEVETIRACETAM [Suspect]
     Active Substance: LEVETIRACETAM
     Indication: Facial pain
  2. LEVETIRACETAM [Suspect]
     Active Substance: LEVETIRACETAM
     Indication: Off label use
  3. FOSPHENYTOIN [Concomitant]
     Active Substance: FOSPHENYTOIN
     Indication: Facial pain
  4. VALPROATE SODIUM [Concomitant]
     Active Substance: VALPROATE SODIUM
     Indication: Facial pain
  5. PHENYTOIN [Concomitant]
     Active Substance: PHENYTOIN
     Indication: Facial pain
  6. BACLOFEN [Concomitant]
     Active Substance: BACLOFEN
     Indication: Facial pain
  7. DESIPRAMINE [Concomitant]
     Active Substance: DESIPRAMINE
     Indication: Facial pain
  8. OXCARBAZEPINE [Concomitant]
     Active Substance: OXCARBAZEPINE
     Indication: Facial pain
  9. GABAPENTIN [Concomitant]
     Active Substance: GABAPENTIN
     Indication: Facial pain
  10. PREGABALIN [Concomitant]
     Active Substance: PREGABALIN
     Indication: Facial pain
  11. DULOXETINE [Concomitant]
     Active Substance: DULOXETINE
     Indication: Facial pain

REACTIONS (2)
  - Off label use [Unknown]
  - Drug ineffective for unapproved indication [Unknown]
